FAERS Safety Report 9414949 (Version 1)
Quarter: 2013Q3

REPORT INFORMATION
  Report Type: Spontaneous
  Country: US (occurrence: US)
  Receive Date: 20130723
  Receipt Date: 20130723
  Transmission Date: 20140515
  Serious: Yes (Hospitalization, Other)
  Sender: FDA-Public Use
  Company Number: US-BAYER-2013-088897

PATIENT
  Age: 36 Year
  Sex: Female

DRUGS (10)
  1. YASMIN [Suspect]
     Indication: PREMENSTRUAL DYSPHORIC DISORDER
  2. YAZ [Suspect]
  3. HYDROCODONE W/ACETAMINOPHEN [Concomitant]
     Indication: PAIN
     Dosage: 10-325 MG, 1 EVERY 4 HOURS AS NEEDED
     Route: 048
  4. DOCUSATE SODIUM [Concomitant]
     Dosage: 100 MG, BID
     Route: 048
  5. METRONIDAZOLE [Concomitant]
     Dosage: 1 APPLICATORFUL TWICE DAILY
     Route: 067
  6. FLUTICASONE [Concomitant]
     Dosage: 50 MCG/ACTUATIN NASAL SPRAY, 1-2 SPRAYS IN EACH NOSTRIL DAILY
     Route: 045
  7. LORATADINE [Concomitant]
     Indication: MULTIPLE ALLERGIES
     Dosage: 10 MG, 1 DAILY
     Route: 048
  8. CYCLOBENZAPRINE [Concomitant]
     Indication: MUSCLE SPASMS
     Dosage: 10 MG, ONE TID
     Route: 048
  9. OMEPRAZOLE [Concomitant]
     Dosage: 20 MG, 1 DAILY 30 MINUTES BEFORE BREAKFAST
     Route: 048
  10. PLAN B [Concomitant]

REACTIONS (2)
  - Pulmonary embolism [None]
  - Cholelithiasis [None]
